FAERS Safety Report 8605547-X (Version None)
Quarter: 2012Q3

REPORT INFORMATION
  Report Type: 
  Country: None (occurrence: None)
  Receive Date: 20120820
  Receipt Date: 20120814
  Transmission Date: 20120928
  Serious: Yes (Other)
  Sender: FDA-Public Use
  Company Number: US-PFIZER INC-2012198748

PATIENT
  Sex: Male

DRUGS (4)
  1. PREZISTA [Concomitant]
     Dosage: UNK
  2. RELPAX [Suspect]
     Indication: HEADACHE
     Dosage: 40 MG, 1X/DAY
     Route: 048
     Dates: start: 20120814, end: 20120814
  3. NORVIR [Concomitant]
     Indication: HIV INFECTION
     Dosage: UNK
     Dates: end: 20120813
  4. TRUVADA [Concomitant]
     Dosage: UNK

REACTIONS (2)
  - DRUG DISPENSING ERROR [None]
  - HAEMOPTYSIS [None]
